FAERS Safety Report 20350453 (Version 4)
Quarter: 2022Q1

REPORT INFORMATION
  Report Type: Spontaneous
  Country: US (occurrence: US)
  Receive Date: 20220119
  Receipt Date: 20220228
  Transmission Date: 20220423
  Serious: Yes (Hospitalization, Other)
  Sender: FDA-Public Use
  Company Number: US-PFIZER INC-202200030783

PATIENT
  Age: 72 Year
  Sex: Female
  Weight: 63.492 kg

DRUGS (2)
  1. LOPID [Suspect]
     Active Substance: GEMFIBROZIL
     Dosage: 600 MG, 2X/DAY
     Route: 048
     Dates: start: 20150102, end: 20210917
  2. WARFARIN [Concomitant]
     Active Substance: WARFARIN
     Indication: Atrial fibrillation
     Dosage: UNK

REACTIONS (21)
  - Atrial fibrillation [Not Recovered/Not Resolved]
  - Haemoglobin decreased [Recovered/Resolved]
  - Anaemia [Unknown]
  - Asthenia [Recovering/Resolving]
  - Dyspnoea [Recovered/Resolved]
  - Spinal stenosis [Unknown]
  - Spondylitis [Unknown]
  - Muscle spasms [Recovered/Resolved]
  - Insomnia [Unknown]
  - Movement disorder [Recovering/Resolving]
  - Back pain [Unknown]
  - Contusion [Unknown]
  - Blood potassium decreased [Unknown]
  - Haemorrhage [Unknown]
  - Internal haemorrhage [Unknown]
  - Arthropathy [Unknown]
  - Blood iron decreased [Unknown]
  - Pallor [Recovering/Resolving]
  - Weight decreased [Unknown]
  - Muscular weakness [Not Recovered/Not Resolved]
  - General physical health deterioration [Recovering/Resolving]

NARRATIVE: CASE EVENT DATE: 20150101
